FAERS Safety Report 15539547 (Version 2)
Quarter: 2019Q1

REPORT INFORMATION
  Report Type: Spontaneous
  Country: IT (occurrence: IT)
  Receive Date: 20181023
  Receipt Date: 20190221
  Transmission Date: 20190417
  Serious: Yes (Hospitalization)
  Sender: FDA-Public Use
  Company Number: IT-ACCORD-073859

PATIENT
  Age: 25 Year
  Sex: Female

DRUGS (2)
  1. DELTACORTENE 5 MG TABLETS [Concomitant]
     Indication: LUPUS NEPHRITIS
     Dosage: 10MG
     Route: 048
  2. MYCOPHENOLATE MOFETIL ACCORD [Suspect]
     Active Substance: MYCOPHENOLATE MOFETIL
     Indication: LUPUS NEPHRITIS
     Dosage: STRENGTH: 500 MG
     Route: 048
     Dates: start: 20170919, end: 20180314

REACTIONS (2)
  - Nephritis [Unknown]
  - Off label use [Unknown]

NARRATIVE: CASE EVENT DATE: 20180314
